FAERS Safety Report 22092564 (Version 1)
Quarter: 2023Q1

REPORT INFORMATION
  Report Type: Spontaneous
  Country: US (occurrence: None)
  Receive Date: 20230313
  Receipt Date: 20230313
  Transmission Date: 20230418
  Serious: Yes (Life-Threatening, Hospitalization)
  Sender: FDA-Public Use
  Company Number: None

PATIENT
  Age: 69 Year
  Sex: Female

DRUGS (3)
  1. AMOXICILLIN [Suspect]
     Active Substance: AMOXICILLIN
     Indication: Bacterial infection
     Dosage: OTHER FREQUENCY : ALL AT ONCE;?
     Route: 048
     Dates: start: 20230301, end: 20230301
  2. AMOXICILLIN [Suspect]
     Active Substance: AMOXICILLIN
     Indication: Infection prophylaxis
  3. AMOXICILLIN [Concomitant]
     Active Substance: AMOXICILLIN
     Dates: start: 20230301, end: 20230301

REACTIONS (1)
  - Drug hypersensitivity [None]

NARRATIVE: CASE EVENT DATE: 20230305
